FAERS Safety Report 8351752 (Version 3)
Quarter: 2014Q4

REPORT INFORMATION
  Report Type: Spontaneous
  Country: US (occurrence: US)
  Receive Date: 20120124
  Receipt Date: 20141030
  Transmission Date: 20150529
  Serious: Yes (Other)
  Sender: FDA-Public Use
  Company Number: US-GLAXOSMITHKLINE-A0962760A

PATIENT
  Sex: Male

DRUGS (1)
  1. AVANDIA [Suspect]
     Active Substance: ROSIGLITAZONE MALEATE
     Indication: DIABETES MELLITUS
     Dosage: 8 MG, QD
     Route: 048
     Dates: start: 20011205, end: 20030516

REACTIONS (5)
  - Myocardial infarction [Unknown]
  - Coronary artery bypass [Unknown]
  - Angina unstable [Unknown]
  - Hypertensive heart disease [Unknown]
  - Pleural effusion [Unknown]
